FAERS Safety Report 20946061 (Version 1)
Quarter: 2022Q2

REPORT INFORMATION
  Report Type: Spontaneous
  Country: BR (occurrence: BR)
  Receive Date: 20220610
  Receipt Date: 20220610
  Transmission Date: 20220721
  Serious: Yes (Life-Threatening, Hospitalization, Other)
  Sender: FDA-Public Use
  Company Number: BR-AstraZeneca-2022A210353

PATIENT
  Sex: Male

DRUGS (2)
  1. SYNAGIS [Interacting]
     Active Substance: PALIVIZUMAB
     Indication: Product used for unknown indication
     Dosage: 1.34ML UNKNOWN
     Route: 030
  2. AMIODARONE HYDROCHLORIDE [Interacting]
     Active Substance: AMIODARONE HYDROCHLORIDE
     Indication: Product used for unknown indication
     Dosage: 3 DROPS
     Route: 065

REACTIONS (11)
  - Cardiac arrest [Recovered/Resolved]
  - Heart rate increased [Recovered/Resolved]
  - Vomiting [Recovered/Resolved]
  - Dehydration [Recovered/Resolved]
  - Apnoea [Unknown]
  - Shock [Unknown]
  - Parainfluenzae virus infection [Unknown]
  - Astrovirus test positive [Unknown]
  - Drug interaction [Unknown]
  - Overdose [Unknown]
  - Product administration error [Unknown]

NARRATIVE: CASE EVENT DATE: 20220505
